FAERS Safety Report 15610004 (Version 2)
Quarter: 2018Q4

REPORT INFORMATION
  Report Type: Spontaneous
  Country: JP (occurrence: JP)
  Receive Date: 20181113
  Receipt Date: 20181122
  Transmission Date: 20190205
  Serious: Yes (Other)
  Sender: FDA-Public Use
  Company Number: JP-ROCHE-2213104

PATIENT
  Age: 68 Year
  Sex: Female

DRUGS (4)
  1. LUCENTIS [Suspect]
     Active Substance: RANIBIZUMAB
     Indication: RETINAL VEIN OCCLUSION
     Route: 031
  2. AFLIBERCEPT [Concomitant]
     Active Substance: AFLIBERCEPT
     Indication: RETINAL VEIN OCCLUSION
     Dosage: UNK
     Route: 031
  3. LUCENTIS [Suspect]
     Active Substance: RANIBIZUMAB
     Indication: MACULAR OEDEMA
  4. AFLIBERCEPT [Concomitant]
     Active Substance: AFLIBERCEPT
     Indication: MACULAR OEDEMA

REACTIONS (3)
  - Drug ineffective [Unknown]
  - Retinal vein occlusion [Unknown]
  - Drug resistance [Unknown]
